FAERS Safety Report 12960444 (Version 5)
Quarter: 2019Q1

REPORT INFORMATION
  Report Type: Report from Study
  Country: US (occurrence: US)
  Receive Date: 20161121
  Receipt Date: 20190129
  Transmission Date: 20190417
  Serious: Yes (Other)
  Sender: FDA-Public Use
  Company Number: PHEH2016US030097

PATIENT
  Sex: Female

DRUGS (1)
  1. TASIGNA [Suspect]
     Active Substance: NILOTINIB
     Indication: PRODUCT USED FOR UNKNOWN INDICATION
     Dosage: UNK
     Route: 065

REACTIONS (8)
  - Memory impairment [Unknown]
  - Wrong technique in product usage process [Unknown]
  - Vomiting [Unknown]
  - Amnesia [Unknown]
  - Dementia [Unknown]
  - Nausea [Unknown]
  - Constipation [Unknown]
  - Gastrointestinal disorder [Unknown]
